FAERS Safety Report 18311477 (Version 6)
Quarter: 2022Q1

REPORT INFORMATION
  Report Type: Report from Study
  Country: CN (occurrence: None)
  Receive Date: 20200925
  Receipt Date: 20220117
  Transmission Date: 20220423
  Serious: Yes (Other)
  Sender: FDA-Public Use
  Company Number: CN-ROCHE-2681670

PATIENT
  Age: 61 Year
  Sex: Male
  Weight: 69 kg

DRUGS (14)
  1. ATEZOLIZUMAB [Suspect]
     Active Substance: ATEZOLIZUMAB
     Indication: Non-small cell lung cancer stage IV
     Dosage: DATE OF MOST RECENT DOSE OF ATEZOLIZUMAB PRIOR TO THE ONSET OF RENAL FUNCTION IMPAIRED: 03/SEP/2020
     Route: 042
     Dates: start: 20200903
  2. BEVACIZUMAB [Suspect]
     Active Substance: BEVACIZUMAB
     Indication: Non-small cell lung cancer stage IV
     Dosage: DATE OF MOST RECENT DOSE (1065 MG) OF BEVACIZUMAB PRIOR TO THE ONSET OF RENAL FUNCTION IMPAIRED: 03/
     Route: 042
     Dates: start: 20200702
  3. CARBOPLATIN [Suspect]
     Active Substance: CARBOPLATIN
     Indication: Non-small cell lung cancer stage IV
     Dosage: DATE OF MOST RECENT DOSE OF CARBOPLATIN PRIOR TO THE ONSET OF RENAL FUNCTION IMPAIRED: 03/SEP/2020?L
     Route: 042
     Dates: start: 20200702
  4. PEMETREXED [Suspect]
     Active Substance: PEMETREXED
     Indication: Non-small cell lung cancer stage IV
     Dosage: DATE OF MOST RECENT DOSE OF PEMETREXED PRIOR TO THE ONSET OF RENAL FUNCTION IMPAIRED: 03/SEP/2020?LA
     Route: 042
     Dates: start: 20200702
  5. FOLIC ACID [Concomitant]
     Active Substance: FOLIC ACID
     Dates: start: 20200624
  6. CANDESARTAN CILEXETIL [Concomitant]
     Active Substance: CANDESARTAN CILEXETIL
     Indication: Hypertension
     Dates: start: 20181119
  7. COMPOUND DEXAMETHASONE ACETATE [Concomitant]
     Indication: Rash
     Route: 062
     Dates: start: 20200710
  8. DEXAMETHASONE ACETATE [Concomitant]
     Active Substance: DEXAMETHASONE ACETATE
     Indication: Hypersensitivity
     Route: 048
     Dates: start: 20200902, end: 20200902
  9. HERBALS [Concomitant]
     Active Substance: HERBALS
     Indication: Gingival pain
     Route: 048
     Dates: start: 20200828, end: 20200830
  10. HERBALS [Concomitant]
     Active Substance: HERBALS
     Indication: Swelling
  11. SHENG XUE BAO [Concomitant]
     Indication: Anaemia
  12. LOSARTAN [Concomitant]
     Active Substance: LOSARTAN
     Indication: Nephrogenic anaemia
     Dates: start: 202009, end: 202009
  13. CYCLOPHOSPHAMIDE [Concomitant]
     Active Substance: CYCLOPHOSPHAMIDE
  14. BRUCEA JAVANICA [Concomitant]

REACTIONS (1)
  - Renal impairment [Not Recovered/Not Resolved]

NARRATIVE: CASE EVENT DATE: 20200918
